FAERS Safety Report 15263957 (Version 1)
Quarter: 2018Q3

REPORT INFORMATION
  Report Type: Spontaneous
  Country: US (occurrence: US)
  Receive Date: 20180810
  Receipt Date: 20180810
  Transmission Date: 20181010
  Serious: No
  Sender: FDA-Public Use
  Company Number: US-SA-2018SA213163

PATIENT
  Sex: Female

DRUGS (10)
  1. GOLD [Concomitant]
     Active Substance: GOLD
  2. HUMIRA [Concomitant]
     Active Substance: ADALIMUMAB
  3. PLAQUENIL S [Concomitant]
     Active Substance: HYDROXYCHLOROQUINE SULFATE
  4. ORENCIA [Concomitant]
     Active Substance: ABATACEPT
  5. ACTEMRA [Concomitant]
     Active Substance: TOCILIZUMAB
  6. METHOTREXATE. [Concomitant]
     Active Substance: METHOTREXATE
  7. ARAVA [Suspect]
     Active Substance: LEFLUNOMIDE
     Indication: RHEUMATOID ARTHRITIS
     Dosage: UNK, UNK
     Route: 065
  8. PREDNISONE. [Concomitant]
     Active Substance: PREDNISONE
  9. RITUXAN [Concomitant]
     Active Substance: RITUXIMAB
  10. SIMPONI [Concomitant]
     Active Substance: GOLIMUMAB

REACTIONS (4)
  - Dyspnoea [Unknown]
  - Drug ineffective [Unknown]
  - Rash [Unknown]
  - Drug intolerance [Unknown]
